FAERS Safety Report 8042683-3 (Version None)
Quarter: 2012Q1

REPORT INFORMATION
  Report Type: 
  Country: None (occurrence: None)
  Receive Date: 20120112
  Receipt Date: 20120105
  Transmission Date: 20120608
  Serious: Yes (Hospitalization, Other)
  Sender: FDA-Public Use
  Company Number: US-MERCK-1111USA02194

PATIENT
  Age: 76 Year
  Sex: Female

DRUGS (7)
  1. IBUPROFEN [Concomitant]
     Indication: ARTHRALGIA
     Route: 048
  2. HYDROXYCHLOROQUINE SULFATE [Concomitant]
     Indication: RHEUMATOID ARTHRITIS
     Route: 065
     Dates: start: 20000101
  3. FOSAMAX [Suspect]
     Indication: OSTEOPENIA
     Route: 048
     Dates: start: 20020325, end: 20091214
  4. FOSAMAX [Suspect]
     Indication: PROPHYLAXIS
     Route: 048
     Dates: start: 20051201
  5. ARIMIDEX [Concomitant]
     Indication: BREAST CANCER
     Route: 065
     Dates: start: 20020301, end: 20070301
  6. FOSAMAX [Suspect]
     Indication: RHEUMATOID ARTHRITIS
     Route: 048
     Dates: start: 20020325, end: 20091214
  7. FOSAMAX [Suspect]
     Route: 048
     Dates: start: 20051201

REACTIONS (13)
  - MUSCULOSKELETAL PAIN [None]
  - CATARACT [None]
  - BASAL CELL CARCINOMA [None]
  - CARPAL TUNNEL SYNDROME [None]
  - FALL [None]
  - ULNA FRACTURE [None]
  - LIGAMENT SPRAIN [None]
  - FEMUR FRACTURE [None]
  - EPISTAXIS [None]
  - ARTHRALGIA [None]
  - MENISCUS LESION [None]
  - HYPERSENSITIVITY [None]
  - LACERATION [None]
